FAERS Safety Report 21612188 (Version 1)
Quarter: 2022Q4

REPORT INFORMATION
  Report Type: Spontaneous
  Country: IT (occurrence: IT)
  Receive Date: 20221118
  Receipt Date: 20221118
  Transmission Date: 20230113
  Serious: Yes (Other)
  Sender: FDA-Public Use
  Company Number: None

PATIENT
  Age: 32 Year
  Sex: Male
  Weight: 70 kg

DRUGS (1)
  1. CYCLOSPORINE [Suspect]
     Active Substance: CYCLOSPORINE
     Indication: Psoriasis
     Dosage: 1 CP 100 MG AND 1 CP 50 MG IN THE MORNING; 1 CP 100MG AND 1 OF 25 MG IN THE EVENING , FREQUENCY TIME
     Dates: start: 2021, end: 20220201

REACTIONS (2)
  - Eczema [Unknown]
  - Loss of therapeutic response [Unknown]

NARRATIVE: CASE EVENT DATE: 20220201
